FAERS Safety Report 9052563 (Version 3)
Quarter: 2014Q2

REPORT INFORMATION
  Report Type: Spontaneous
  Country: GB (occurrence: GB)
  Receive Date: 20130207
  Receipt Date: 20140416
  Transmission Date: 20141212
  Serious: Yes (Hospitalization)
  Sender: FDA-Public Use
  Company Number: GB-BRISTOL-MYERS SQUIBB COMPANY-17339532

PATIENT
  Age: 68 Year
  Sex: Female

DRUGS (5)
  1. METFORMIN HCL [Suspect]
  2. THEOPHYLLINE [Suspect]
  3. PREDNISOLONE [Suspect]
     Indication: ASTHMA
  4. FLIXOTIDE [Suspect]
  5. SINGULAIR [Suspect]
     Indication: ASTHMA
     Dosage: TAB
     Route: 048

REACTIONS (8)
  - Peritonitis bacterial [Recovered/Resolved]
  - White blood cell count increased [Unknown]
  - Pyrexia [Unknown]
  - Abdominal pain [Unknown]
  - Escherichia infection [Unknown]
  - Gram stain positive [Unknown]
  - Peritoneal abscess [Unknown]
  - Purulence [Unknown]
